FAERS Safety Report 12309004 (Version 1)
Quarter: 2016Q2

REPORT INFORMATION
  Report Type: Report from Study
  Country: CN (occurrence: CN)
  Receive Date: 20160427
  Receipt Date: 20160427
  Transmission Date: 20160815
  Serious: Yes (Death, Other)
  Sender: FDA-Public Use
  Company Number: CN-ROCHE-1443599

PATIENT
  Sex: Female
  Weight: 56 kg

DRUGS (1)
  1. AVASTIN [Suspect]
     Active Substance: BEVACIZUMAB
     Indication: COLON CANCER
     Route: 042
     Dates: start: 20140306, end: 20150130

REACTIONS (6)
  - Condition aggravated [Fatal]
  - Platelet count decreased [Recovering/Resolving]
  - Peripheral swelling [Unknown]
  - White blood cell count decreased [Unknown]
  - Ascites [Unknown]
  - Gait disturbance [Unknown]
